FAERS Safety Report 23599197 (Version 1)
Quarter: 2024Q1

REPORT INFORMATION
  Report Type: Spontaneous
  Country: US (occurrence: US)
  Receive Date: 20240306
  Receipt Date: 20240306
  Transmission Date: 20240410
  Serious: No
  Sender: FDA-Public Use
  Company Number: US-AUROBINDO-AUR-APL-2023-030813

PATIENT
  Age: 78 Year
  Sex: Female

DRUGS (4)
  1. CEFADROXIL [Suspect]
     Active Substance: CEFADROXIL
     Indication: Cystitis
     Dosage: UNK UNK, TWO TIMES A DAY
     Route: 065
  2. CEFADROXIL [Suspect]
     Active Substance: CEFADROXIL
     Indication: Haemorrhage
  3. CEFADROXIL [Suspect]
     Active Substance: CEFADROXIL
     Indication: Renal failure
  4. CEFADROXIL [Suspect]
     Active Substance: CEFADROXIL
     Indication: Urinary tract infection

REACTIONS (3)
  - Product physical issue [Unknown]
  - Product physical consistency issue [Unknown]
  - Wrong technique in product usage process [Unknown]
